FAERS Safety Report 19074282 (Version 2)
Quarter: 2021Q2

REPORT INFORMATION
  Report Type: Spontaneous
  Country: US (occurrence: US)
  Receive Date: 20210330
  Receipt Date: 20210421
  Transmission Date: 20210717
  Serious: Yes (Other)
  Sender: FDA-Public Use
  Company Number: US-SA-2021SA098710

PATIENT
  Age: 86 Year
  Sex: Female

DRUGS (2)
  1. LANTUS SOLOSTAR [Suspect]
     Active Substance: INSULIN GLARGINE
     Indication: TYPE 1 DIABETES MELLITUS
     Dosage: UNK U, QD
     Dates: start: 2017
  2. LANTUS SOLOSTAR [Suspect]
     Active Substance: INSULIN GLARGINE
     Dosage: 28 U, QD

REACTIONS (7)
  - Blood glucose increased [Unknown]
  - Memory impairment [Unknown]
  - Cerebral haemorrhage [Unknown]
  - Cardiac ablation [Unknown]
  - Device operational issue [Unknown]
  - Hypoacusis [Unknown]
  - Drug dose omission by device [Unknown]
